FAERS Safety Report 8971136 (Version 9)
Quarter: 2015Q2

REPORT INFORMATION
  Report Type: Spontaneous
  Country: IL (occurrence: IL)
  Receive Date: 20121218
  Receipt Date: 20150409
  Transmission Date: 20150821
  Serious: Yes (Hospitalization, Disabling)
  Sender: FDA-Public Use
  Company Number: PHHY2012IL077745

PATIENT
  Age: 35 Year
  Sex: Female

DRUGS (1)
  1. GILENYA [Suspect]
     Active Substance: FINGOLIMOD HYDROCHLORIDE
     Indication: MULTIPLE SCLEROSIS
     Dosage: 0.5 MG, QD
     Route: 048
     Dates: start: 20110907

REACTIONS (22)
  - Visual field defect [Unknown]
  - Urinary retention [Unknown]
  - Central nervous system lesion [Recovering/Resolving]
  - Arthralgia [Unknown]
  - Vision blurred [Recovering/Resolving]
  - Nystagmus [Unknown]
  - Neuromyelitis optica [Recovering/Resolving]
  - Dysgraphia [Recovering/Resolving]
  - Deafness [Recovering/Resolving]
  - Hemianopia homonymous [Unknown]
  - Agnosia [Recovering/Resolving]
  - Cognitive disorder [Unknown]
  - Autonomic nervous system imbalance [Recovering/Resolving]
  - Multiple sclerosis relapse [Unknown]
  - Hemiparesis [Unknown]
  - Visual impairment [Not Recovered/Not Resolved]
  - Gait disturbance [Unknown]
  - Dyslexia [Recovering/Resolving]
  - Demyelination [Unknown]
  - CNS ventriculitis [Unknown]
  - Optic neuritis [Unknown]
  - CSF protein increased [Unknown]

NARRATIVE: CASE EVENT DATE: 20130112
